FAERS Safety Report 24150013 (Version 1)
Quarter: 2024Q3

REPORT INFORMATION
  Report Type: Spontaneous
  Country: US (occurrence: US)
  Receive Date: 20240730
  Receipt Date: 20240730
  Transmission Date: 20241017
  Serious: No
  Sender: BIOGEN
  Company Number: US-BIOGEN-2022BI01103005

PATIENT
  Age: 57 Year
  Sex: Female

DRUGS (1)
  1. TYSABRI [Suspect]
     Active Substance: NATALIZUMAB
     Indication: Multiple sclerosis
     Route: 050
     Dates: start: 20190809

REACTIONS (8)
  - Autoimmune arthritis [Unknown]
  - Multiple sclerosis relapse [Unknown]
  - Hemihypoaesthesia [Recovered/Resolved]
  - Pain [Recovered/Resolved]
  - Peripheral swelling [Not Recovered/Not Resolved]
  - Fatigue [Recovered/Resolved with Sequelae]
  - Headache [Recovered/Resolved with Sequelae]
  - Joint swelling [Recovered/Resolved]

NARRATIVE: CASE EVENT DATE: 20240713
